FAERS Safety Report 20540165 (Version 1)
Quarter: 2022Q1

REPORT INFORMATION
  Report Type: Spontaneous
  Country: DE (occurrence: DE)
  Receive Date: 20220302
  Receipt Date: 20220302
  Transmission Date: 20220423
  Serious: Yes (Hospitalization)
  Sender: FDA-Public Use
  Company Number: DE-ELI_LILLY_AND_COMPANY-DE202202007821

PATIENT
  Age: 83 Year
  Sex: Female

DRUGS (5)
  1. CYRAMZA [Suspect]
     Active Substance: RAMUCIRUMAB
     Indication: Colorectal cancer metastatic
     Dosage: UNK UNK, UNKNOWN
     Route: 065
     Dates: start: 20211005
  2. CYRAMZA [Suspect]
     Active Substance: RAMUCIRUMAB
     Dosage: UNK UNK, UNKNOWN
     Route: 065
     Dates: start: 20211019
  3. CYRAMZA [Suspect]
     Active Substance: RAMUCIRUMAB
     Dosage: UNK UNK, UNKNOWN
     Route: 065
     Dates: start: 20211109
  4. CYRAMZA [Suspect]
     Active Substance: RAMUCIRUMAB
     Dosage: UNK UNK, UNKNOWN
     Route: 065
     Dates: start: 20211109, end: 20211109
  5. FLUOROURACIL\IRINOTECAN\LEUCOVORIN [Suspect]
     Active Substance: FLUOROURACIL\IRINOTECAN\LEUCOVORIN
     Indication: Colorectal cancer metastatic
     Dosage: UNK UNK, UNKNOWN
     Route: 065
     Dates: start: 20211005, end: 20211109

REACTIONS (3)
  - Constipation [Unknown]
  - General physical health deterioration [Unknown]
  - Abdominal pain [Unknown]
